FAERS Safety Report 13981328 (Version 4)
Quarter: 2020Q1

REPORT INFORMATION
  Report Type: Spontaneous
  Country: US (occurrence: US)
  Receive Date: 20170918
  Receipt Date: 20200123
  Transmission Date: 20200409
  Serious: Yes (Hospitalization)
  Sender: FDA-Public Use
  Company Number: US-PFIZER INC-2016328982

PATIENT
  Age: 85 Year
  Sex: Male
  Weight: 68 kg

DRUGS (6)
  1. ASPIRIN. [Concomitant]
     Active Substance: ASPIRIN
     Dosage: UNK
  2. LOSARTAN POTASSIUM. [Concomitant]
     Active Substance: LOSARTAN POTASSIUM
     Dosage: UNK
  3. LETROZOLE. [Concomitant]
     Active Substance: LETROZOLE
     Dosage: UNK
  4. IBRANCE [Suspect]
     Active Substance: PALBOCICLIB
     Indication: BREAST CANCER MALE
     Dosage: 125 MG, CYCLIC (BY MOUTH ONCE A DAY FOR 21 DAYS ON; 7 DAYS OFF)
     Route: 048
     Dates: start: 2015
  5. IBRANCE [Suspect]
     Active Substance: PALBOCICLIB
     Dosage: 125 MG, CYCLIC (FOR 21 AND A 28 DAY CYCLE, FOR 21 DAYS AND THEN 7 DAYS OFF)
     Route: 048
     Dates: start: 201605
  6. FULVESTRANT. [Concomitant]
     Active Substance: FULVESTRANT
     Indication: NEOPLASM MALIGNANT
     Dosage: 2 DF, UNK,  (INJECTIONS IN THE BUTT EACH CLINIC VISIT)

REACTIONS (3)
  - Product use issue [Unknown]
  - Pneumonia [Unknown]
  - Off label use [Unknown]

NARRATIVE: CASE EVENT DATE: 2015
